FAERS Safety Report 23700154 (Version 3)
Quarter: 2024Q4

REPORT INFORMATION
  Report Type: Spontaneous
  Country: JP (occurrence: JP)
  Receive Date: 20240403
  Receipt Date: 20241203
  Transmission Date: 20250114
  Serious: Yes (Hospitalization, Other)
  Sender: MERCK
  Company Number: JP-MSD-2310JPN001333JAA

PATIENT
  Age: 45 Year
  Sex: Female

DRUGS (5)
  1. KEYTRUDA [Suspect]
     Active Substance: PEMBROLIZUMAB
     Indication: Triple negative breast cancer
     Dosage: 200 MILLIGRAM, Q3W
     Route: 041
     Dates: start: 202304, end: 2023
  2. PACLITAXEL [Suspect]
     Active Substance: PACLITAXEL
     Indication: Triple negative breast cancer
     Dosage: UNK, QW
     Route: 065
     Dates: end: 2023
  3. PACLITAXEL [Suspect]
     Active Substance: PACLITAXEL
     Dosage: UNK, QW
     Route: 065
     Dates: start: 2023
  4. TRAMCET [Concomitant]
     Active Substance: ACETAMINOPHEN\TRAMADOL
     Dosage: UNK
     Route: 065
  5. CALONAL [Concomitant]
     Active Substance: ACETAMINOPHEN
     Dosage: UNK
     Route: 065

REACTIONS (6)
  - Immune-mediated enterocolitis [Recovered/Resolved]
  - Hepatic function abnormal [Recovered/Resolved]
  - Hypothyroidism [Recovered/Resolved]
  - Chronic gastritis [Recovered/Resolved]
  - Gastrooesophageal reflux disease [Unknown]
  - Rash [Unknown]

NARRATIVE: CASE EVENT DATE: 20230101
